FAERS Safety Report 7163684-3 (Version None)
Quarter: 2010Q4

REPORT INFORMATION
  Report Type: 
  Country: None (occurrence: None)
  Receive Date: 20101215
  Receipt Date: 20100527
  Transmission Date: 20110411
  Serious: Yes (Hospitalization)
  Sender: FDA-Public Use
  Company Number: FR-PFIZER INC-2010066520

PATIENT
  Age: 77 Year
  Sex: Male

DRUGS (6)
  1. LYRICA [Suspect]
     Indication: NEURALGIA
     Dosage: UNK
     Route: 048
     Dates: start: 20091101, end: 20091101
  2. VALIUM [Concomitant]
     Indication: ALCOHOL WITHDRAWAL SYNDROME
     Dosage: UNK
     Route: 048
     Dates: start: 20091101, end: 20091101
  3. VITAMIN B1 TAB [Concomitant]
     Dosage: UNK
     Route: 048
     Dates: start: 20091101, end: 20091101
  4. CELEBREX [Concomitant]
     Indication: PAIN
     Dosage: UNK
     Route: 048
     Dates: start: 20091101, end: 20091101
  5. NEXIUM [Concomitant]
     Indication: PROPHYLAXIS AGAINST GASTROINTESTINAL ULCER
     Dosage: UNK
     Route: 048
     Dates: start: 20091101
  6. VITAMIN B-12 [Concomitant]
     Dosage: UNK
     Route: 048
     Dates: start: 20091101

REACTIONS (1)
  - CONDITION AGGRAVATED [None]
